FAERS Safety Report 8624812-3 (Version None)
Quarter: 2012Q3

REPORT INFORMATION
  Report Type: 
  Country: None (occurrence: None)
  Receive Date: 20120827
  Receipt Date: 20120810
  Transmission Date: 20120928
  Serious: Yes (Hospitalization)
  Sender: FDA-Public Use
  Company Number: US-009507513-2012SP036808

PATIENT

DRUGS (1)
  1. ASMANEX TWISTHALER [Suspect]
     Dosage: TWO INHALATIONS ONCE DAILY
     Route: 055
     Dates: start: 20120101

REACTIONS (7)
  - SKIN MASS [None]
  - CHEST PAIN [None]
  - PALPITATIONS [None]
  - SYNCOPE [None]
  - DRUG DOSE OMISSION [None]
  - DYSPNOEA [None]
  - OXYGEN SATURATION DECREASED [None]
